FAERS Safety Report 5303396-1 (Version None)
Quarter: 2007Q2

REPORT INFORMATION
  Report Type: 
  Country: None (occurrence: None)
  Receive Date: 20070420
  Receipt Date: 20070409
  Transmission Date: 20071010
  Serious: Yes (Death, Hospitalization)
  Sender: FDA-Public Use
  Company Number: BR-ROCHE-488931

PATIENT
  Age: 69 Year
  Sex: Female
  Weight: 92 kg

DRUGS (3)
  1. CAPECITABINE [Suspect]
     Dosage: FOR 14 DAYS OVER 3 WEEKS
     Route: 065
     Dates: start: 20070205
  2. BEVACIZUMAB [Suspect]
     Route: 042
     Dates: start: 20070205, end: 20070317
  3. DOCETAXEL [Suspect]
     Route: 065
     Dates: start: 20070205

REACTIONS (3)
  - DIARRHOEA [None]
  - MUCOSAL INFLAMMATION [None]
  - RENAL FAILURE [None]
